FAERS Safety Report 20154219 (Version 1)
Quarter: 2021Q4

REPORT INFORMATION
  Report Type: Spontaneous
  Country: DE (occurrence: None)
  Receive Date: 20211207
  Receipt Date: 20211207
  Transmission Date: 20220303
  Serious: Yes (Other)
  Sender: FDA-Public Use
  Company Number: DE-ROCHE-2926079

PATIENT
  Age: 60 Year
  Sex: Female
  Weight: 58 kg

DRUGS (4)
  1. HERCEPTIN [Suspect]
     Active Substance: TRASTUZUMAB
     Indication: Breast cancer
     Route: 042
  2. HERCEPTIN [Suspect]
     Active Substance: TRASTUZUMAB
     Route: 042
  3. DEXAMETHASONE [Suspect]
     Active Substance: DEXAMETHASONE
     Indication: Product used for unknown indication
     Route: 065
  4. CLEMASTINE FUMARATE [Suspect]
     Active Substance: CLEMASTINE FUMARATE
     Indication: Product used for unknown indication
     Route: 065

REACTIONS (6)
  - Chills [Recovered/Resolved]
  - Feeling cold [Recovered/Resolved]
  - Pyrexia [Unknown]
  - Feeling hot [Recovered/Resolved]
  - Dyspnoea [Unknown]
  - Blood pressure increased [Recovered/Resolved]

NARRATIVE: CASE EVENT DATE: 20210812
